FAERS Safety Report 8241747-9 (Version None)
Quarter: 2012Q1

REPORT INFORMATION
  Report Type: 
  Country: None (occurrence: None)
  Receive Date: 20120328
  Receipt Date: 20120314
  Transmission Date: 20120608
  Serious: Yes (Other)
  Sender: FDA-Public Use
  Company Number: US-ROCHE-1053508

PATIENT
  Sex: Female

DRUGS (2)
  1. OMALIZUMAB [Suspect]
     Indication: ASTHMA
     Dosage: UNK UNK, UNKNOWN
     Route: 064
     Dates: start: 20090201, end: 20100601
  2. OMALIZUMAB [Suspect]
     Dosage: 300 MG, Q4W
     Route: 058

REACTIONS (3)
  - MATERNAL DRUGS AFFECTING FOETUS [None]
  - EAR INFECTION [None]
  - MATERNAL EXPOSURE TIMING UNSPECIFIED [None]
